FAERS Safety Report 24259487 (Version 1)
Quarter: 2024Q3

REPORT INFORMATION
  Report Type: Spontaneous
  Country: FR (occurrence: FR)
  Receive Date: 20240828
  Receipt Date: 20240828
  Transmission Date: 20241016
  Serious: Yes (Hospitalization, Other)
  Sender: TEVA
  Company Number: FR-TEVA-VS-3236100

PATIENT
  Age: 75 Year
  Sex: Male

DRUGS (4)
  1. SILDENAFIL [Suspect]
     Active Substance: SILDENAFIL
     Indication: Benign prostatic hyperplasia
     Route: 065
  2. DEVICE [Suspect]
     Active Substance: DEVICE
     Indication: Prostatic artery embolisation
     Route: 065
  3. ALPROSTADIL [Suspect]
     Active Substance: ALPROSTADIL
     Indication: Erectile dysfunction
     Route: 065
  4. SILODOSIN [Suspect]
     Active Substance: SILODOSIN
     Indication: Benign prostatic hyperplasia
     Route: 065

REACTIONS (3)
  - Penile necrosis [Unknown]
  - Erectile dysfunction [Unknown]
  - Drug ineffective [Unknown]
